FAERS Safety Report 15108434 (Version 2)
Quarter: 2018Q4

REPORT INFORMATION
  Report Type: Report from Study
  Country: None (occurrence: BR)
  Receive Date: 20180705
  Receipt Date: 20181027
  Transmission Date: 20190204
  Serious: Yes (Hospitalization, Other)
  Sender: FDA-Public Use
  Company Number: BR-ABBVIE-18K-020-2409847-00

PATIENT
  Age: 81 Year
  Sex: Female
  Weight: 56 kg

DRUGS (1)
  1. HUMIRA [Suspect]
     Active Substance: ADALIMUMAB
     Indication: RHEUMATOID ARTHRITIS
     Route: 058
     Dates: start: 20111002, end: 201805

REACTIONS (6)
  - Vomiting [Unknown]
  - Surgical failure [Unknown]
  - Fungal infection [Unknown]
  - Gastrointestinal disorder [Not Recovered/Not Resolved]
  - Bacterial infection [Unknown]
  - Malaise [Unknown]

NARRATIVE: CASE EVENT DATE: 20181023
